FAERS Safety Report 14532169 (Version 14)
Quarter: 2019Q1

REPORT INFORMATION
  Report Type: Report from Study
  Country: US (occurrence: US)
  Receive Date: 20180214
  Receipt Date: 20190213
  Transmission Date: 20190417
  Serious: Yes (Hospitalization)
  Sender: FDA-Public Use
  Company Number: US-ACTELION-A-NJ2018-167132

PATIENT
  Age: 72 Year
  Sex: Female
  Weight: 65.76 kg

DRUGS (5)
  1. SILDENAFIL. [Concomitant]
     Active Substance: SILDENAFIL
  2. PROTONIX [Concomitant]
     Active Substance: PANTOPRAZOLE SODIUM
  3. VELETRI [Suspect]
     Active Substance: EPOPROSTENOL
     Indication: PULMONARY ARTERIAL HYPERTENSION
     Dosage: 15 NG/KG, PER MIN
     Route: 042
  4. VELETRI [Suspect]
     Active Substance: EPOPROSTENOL
     Dosage: UNK
     Route: 042
  5. PEPCID [Concomitant]
     Active Substance: FAMOTIDINE

REACTIONS (31)
  - Gastrointestinal disorder [Not Recovered/Not Resolved]
  - Dyspepsia [Unknown]
  - Abdominal discomfort [Unknown]
  - Dyspnoea exertional [Unknown]
  - Constipation [Not Recovered/Not Resolved]
  - Gastrooesophageal reflux disease [Unknown]
  - Pruritus [Unknown]
  - Dyspnoea [Recovering/Resolving]
  - Generalised tonic-clonic seizure [Unknown]
  - Gait disturbance [Unknown]
  - Pain in jaw [Unknown]
  - Flushing [Unknown]
  - Sinus disorder [Unknown]
  - Paranasal sinus hypersecretion [Unknown]
  - Headache [Unknown]
  - Fatigue [Unknown]
  - Pain in extremity [Unknown]
  - Hiatus hernia [Unknown]
  - Anxiety [Unknown]
  - Dizziness [Unknown]
  - Device damage [Recovered/Resolved]
  - Blood magnesium decreased [Unknown]
  - Visual impairment [Unknown]
  - Peripheral swelling [Unknown]
  - Palpitations [Unknown]
  - Cough [Unknown]
  - Abdominal pain upper [Unknown]
  - Diarrhoea [Not Recovered/Not Resolved]
  - Nausea [Unknown]
  - Vomiting [Unknown]
  - Device alarm issue [Not Recovered/Not Resolved]

NARRATIVE: CASE EVENT DATE: 20180210
